FAERS Safety Report 5019650-7 (Version None)
Quarter: 2006Q2

REPORT INFORMATION
  Report Type: 
  Country: None (occurrence: None)
  Receive Date: 20060601
  Receipt Date: 20060517
  Transmission Date: 20061013
  Serious: Yes (Death)
  Sender: FDA-Public Use
  Company Number: 2006S1004525

PATIENT
  Age: 58 Year
  Sex: Male

DRUGS (9)
  1. CLOZAPINE [Suspect]
     Indication: PSYCHOTIC DISORDER
     Dosage: 200 MG;HS;ORAL
     Route: 048
     Dates: start: 20040901, end: 20060501
  2. BENZTROPINE MESYLATE [Concomitant]
  3. CITALOPRAM HYDROBROMIDE [Concomitant]
  4. HALOPERIDOL DECANOATE [Concomitant]
  5. RANITDINE [Concomitant]
  6. HYDROCHLORIDE [Concomitant]
  7. OLANZAPINE [Concomitant]
  8. QUETIAPINE FUMARATE [Concomitant]
  9. MORPHINE [Concomitant]

REACTIONS (1)
  - FAILURE TO THRIVE [None]
